FAERS Safety Report 16756007 (Version 1)
Quarter: 2019Q3

REPORT INFORMATION
  Report Type: Spontaneous
  Country: GB (occurrence: GB)
  Receive Date: 20190829
  Receipt Date: 20190829
  Transmission Date: 20191005
  Serious: Yes (Other)
  Sender: FDA-Public Use
  Company Number: GB-MYLANLABS-2019M1079542

PATIENT
  Age: 58 Year
  Sex: Female

DRUGS (10)
  1. LOPERAMIDE [Suspect]
     Active Substance: LOPERAMIDE
     Indication: DIARRHOEA
     Dosage: 2 MILLIGRAM, PRN
     Route: 048
  2. TRASTUZUMAB. [Suspect]
     Active Substance: TRASTUZUMAB
     Indication: BREAST CANCER
     Dosage: 425 MILLIGRAM, Q3W
     Route: 042
     Dates: start: 20181011
  3. SODIUM CHLORIDE 0.9% [Suspect]
     Active Substance: SODIUM CHLORIDE
     Indication: MEDICATION DILUTION
     Dosage: 1 UNK, Q3W WITH PERTUZUMAB
     Route: 042
     Dates: start: 20181011
  4. COLESTIPOL [Suspect]
     Active Substance: COLESTIPOL
     Indication: DIARRHOEA
     Dosage: 2 UNK UNK, QD SACHETS
     Route: 065
     Dates: start: 20181011
  5. SODIUM CHLORIDE 0.9% [Suspect]
     Active Substance: SODIUM CHLORIDE
     Dosage: UNK UNK, QW WITH DOCETAXEL HOSPIRA
     Route: 042
     Dates: start: 20181011
  6. DOCETAXEL. [Suspect]
     Active Substance: DOCETAXEL
     Indication: BREAST CANCER
     Dosage: PREVIOUS CYCLE
     Route: 065
  7. DOCETAXEL. [Suspect]
     Active Substance: DOCETAXEL
     Dosage: 63 MILLIGRAM, QW DOSE REDUCED THAN PREVIOUS CYCLE
     Route: 042
     Dates: start: 20181011
  8. SODIUM CHLORIDE 0.9% [Suspect]
     Active Substance: SODIUM CHLORIDE
     Dosage: 1 UNK, Q3W WITH PERTUZUMAB
     Route: 042
     Dates: start: 20181011
  9. PERTUZUMAB. [Suspect]
     Active Substance: PERTUZUMAB
     Indication: BREAST CANCER
     Dosage: 420 MILLIGRAM, Q3W
     Route: 042
     Dates: start: 20181011
  10. MAGNASPARTATE [Concomitant]
     Indication: BLOOD MAGNESIUM DECREASED
     Dosage: 2 UNK UNK, QD SACHETS
     Route: 048
     Dates: start: 20181006, end: 20181010

REACTIONS (3)
  - Blood magnesium decreased [Recovered/Resolved]
  - Body temperature decreased [Recovered/Resolved]
  - Malaise [Recovered/Resolved]

NARRATIVE: CASE EVENT DATE: 20181031
